FAERS Safety Report 8367220-5 (Version None)
Quarter: 2012Q2

REPORT INFORMATION
  Report Type: 
  Country: None (occurrence: None)
  Receive Date: 20120517
  Receipt Date: 20120511
  Transmission Date: 20120825
  Serious: Yes (Hospitalization, Other)
  Sender: FDA-Public Use
  Company Number: PHHY2012BE039151

PATIENT
  Age: 45 Year
  Sex: Female

DRUGS (4)
  1. DEXAMETHASONE [Suspect]
     Indication: ANAESTHESIA
     Dosage: 5 MG
  2. PROPOFOL [Suspect]
     Indication: ANAESTHESIA
     Dosage: 200 MG
  3. SUFENTANIL CITRATE [Suspect]
     Indication: ANAESTHESIA
     Dosage: 20 UG
  4. CISATRACURIUM BESYLATE [Suspect]
     Indication: ANAESTHESIA
     Dosage: 12 MG

REACTIONS (8)
  - BLOOD PRESSURE ABNORMAL [None]
  - PULSE PRESSURE DECREASED [None]
  - ANAPHYLACTIC SHOCK [None]
  - OXYGEN SATURATION ABNORMAL [None]
  - HYPOVENTILATION [None]
  - FIBRINOLYSIS INCREASED [None]
  - WHEEZING [None]
  - CYANOSIS [None]
